FAERS Safety Report 6732060-7 (Version None)
Quarter: 2010Q2

REPORT INFORMATION
  Report Type: 
  Country: None (occurrence: None)
  Receive Date: 20100519
  Receipt Date: 20100507
  Transmission Date: 20101027
  Serious: Yes (Other)
  Sender: FDA-Public Use
  Company Number: US-JNJFOC-20100504610

PATIENT
  Age: 4 Year
  Sex: Male
  Weight: 20.87 kg

DRUGS (4)
  1. CHILDREN'S MOTRIN [Suspect]
     Route: 048
  2. CHILDREN'S MOTRIN [Suspect]
     Indication: PYREXIA
     Dosage: 1 DOSE
     Route: 048
  3. CHILDREN'S TYLENOL LIQUID STRAWBERRY [Suspect]
     Route: 048
  4. CHILDREN'S TYLENOL LIQUID STRAWBERRY [Suspect]
     Indication: PYREXIA
     Dosage: 1 DOSE
     Route: 048

REACTIONS (3)
  - LIP SWELLING [None]
  - PRODUCT QUALITY ISSUE [None]
  - RASH [None]
